FAERS Safety Report 9620798 (Version 1)
Quarter: 2013Q4

REPORT INFORMATION
  Report Type: Other
  Country: DE (occurrence: DE)
  Receive Date: 20131015
  Receipt Date: 20131015
  Transmission Date: 20140711
  Serious: Yes (Hospitalization, Other)
  Sender: FDA-Public Use
  Company Number: DE-LUPIN PHARMACEUTICALS INC.-E2B_00001331

PATIENT
  Age: 1 Day
  Sex: Female
  Weight: 1.42 kg

DRUGS (1)
  1. LAMOTRIGIN [Suspect]
     Indication: EPILEPSY
     Route: 064

REACTIONS (5)
  - Feeding disorder neonatal [Recovered/Resolved]
  - Premature baby [Recovered/Resolved]
  - Somnolence [Recovered/Resolved]
  - Small for dates baby [Recovering/Resolving]
  - Foetal exposure during pregnancy [Recovered/Resolved]
